FAERS Safety Report 4748705-7 (Version None)
Quarter: 2005Q3

REPORT INFORMATION
  Report Type: 
  Country: None (occurrence: None)
  Receive Date: 20050817
  Receipt Date: 20050805
  Transmission Date: 20060218
  Serious: Yes (Hospitalization, Other)
  Sender: FDA-Public Use
  Company Number: 2005112005

PATIENT
  Age: 63 Year
  Sex: Female
  Weight: 108.8633 kg

DRUGS (3)
  1. CELEBREX [Suspect]
     Indication: OSTEOARTHRITIS
     Dosage: 200 MG (100 MG, 2 IN 1 D), ORAL
     Route: 048
  2. NEURONTIN [Suspect]
     Indication: ILL-DEFINED DISORDER
     Dosage: 1800 MG (600 MG, 2 IN 1 D), ORAL
     Route: 048
  3. BEXTRA [Suspect]
     Indication: OSTEOARTHRITIS
     Dosage: 30 MG (10 MG, 3 IN 1 D), ORAL
     Route: 048

REACTIONS (5)
  - HERNIA REPAIR [None]
  - LARGE INTESTINE PERFORATION [None]
  - MYOCARDIAL INFARCTION [None]
  - POST PROCEDURAL COMPLICATION [None]
  - THROMBOSIS [None]
